FAERS Safety Report 15554574 (Version 1)
Quarter: 2018Q4

REPORT INFORMATION
  Report Type: Report from Study
  Country: TH (occurrence: TH)
  Receive Date: 20181026
  Receipt Date: 20181026
  Transmission Date: 20190205
  Serious: Yes (Death, Hospitalization, Other)
  Sender: FDA-Public Use
  Company Number: TH-AUROBINDO-AUR-APL-2018-051502

PATIENT

DRUGS (1)
  1. MEROPENEM. [Suspect]
     Active Substance: MEROPENEM
     Indication: PRODUCT USED FOR UNKNOWN INDICATION
     Dosage: UNK
     Route: 065

REACTIONS (4)
  - Pericarditis [Unknown]
  - Drug reaction with eosinophilia and systemic symptoms [Unknown]
  - Cardiac disorder [Fatal]
  - Left ventricular dysfunction [Unknown]
